FAERS Safety Report 12495703 (Version 1)
Quarter: 2016Q2

REPORT INFORMATION
  Report Type: Report from Study
  Country: US (occurrence: US)
  Receive Date: 20160624
  Receipt Date: 20160624
  Transmission Date: 20160815
  Serious: Yes (Life-Threatening, Hospitalization, Other)
  Sender: FDA-Public Use
  Company Number: US-ELI_LILLY_AND_COMPANY-US201606005799

PATIENT
  Age: 53 Year
  Sex: Female
  Weight: 68.6 kg

DRUGS (5)
  1. GEMCITABINE HYDROCHLORIDE. [Suspect]
     Active Substance: GEMCITABINE HYDROCHLORIDE
     Indication: PANCREATIC CARCINOMA METASTATIC
     Dosage: 1000 MG/M2, CYCLICAL
     Route: 065
     Dates: start: 20160602
  2. DULOXETINE. [Concomitant]
     Active Substance: DULOXETINE
     Route: 065
  3. ONDANSETRON [Concomitant]
     Active Substance: ONDANSETRON
     Dosage: UNK
     Route: 065
  4. FENTANYL                           /00174602/ [Concomitant]
     Active Substance: FENTANYL
     Dosage: UNK
     Route: 065
  5. PACLITAXEL, ABI-007 PROTEIN BOUND [Suspect]
     Active Substance: PACLITAXEL
     Indication: PANCREATIC CARCINOMA METASTATIC
     Dosage: 125 MG/M2, CYCLICAL
     Route: 065
     Dates: start: 20160602

REACTIONS (8)
  - Abdominal distension [Unknown]
  - Leukopenia [Unknown]
  - Pyrexia [Recovered/Resolved]
  - Mucosal inflammation [Unknown]
  - Neutropenia [Not Recovered/Not Resolved]
  - Septic shock [Not Recovered/Not Resolved]
  - Abdominal pain lower [Unknown]
  - Diarrhoea [Unknown]

NARRATIVE: CASE EVENT DATE: 20160610
